FAERS Safety Report 5442009-5 (Version None)
Quarter: 2007Q3

REPORT INFORMATION
  Report Type: 
  Country: None (occurrence: None)
  Receive Date: 20070829
  Receipt Date: 20070821
  Transmission Date: 20080115
  Serious: Yes (Other)
  Sender: FDA-Public Use
  Company Number: 2007EN000202

PATIENT
  Age: 17 Month
  Sex: Female

DRUGS (1)
  1. OPANA ER [Suspect]
     Dosage: ;X1;PO
     Route: 048
     Dates: start: 20070328, end: 20070328

REACTIONS (1)
  - ACCIDENTAL EXPOSURE [None]
